FAERS Safety Report 5129973-9 (Version None)
Quarter: 2006Q4

REPORT INFORMATION
  Report Type: 
  Country: None (occurrence: None)
  Receive Date: 20061013
  Receipt Date: 20061005
  Transmission Date: 20070319
  Serious: Yes (Hospitalization, Other)
  Sender: FDA-Public Use
  Company Number: 2006123622

PATIENT
  Age: 63 Year
  Sex: Female

DRUGS (1)
  1. LIPITOR [Suspect]
     Dosage: 40 MG (20 MG, 2 IN 1 D)
     Dates: start: 20060928

REACTIONS (5)
  - BLOOD PRESSURE INCREASED [None]
  - CHOKING [None]
  - ERYTHEMA [None]
  - MYOCARDIAL INFARCTION [None]
  - OEDEMA [None]
